FAERS Safety Report 4485307-4 (Version None)
Quarter: 2004Q3

REPORT INFORMATION
  Report Type: 
  Country: None (occurrence: None)
  Receive Date: 20040921
  Receipt Date: 20040512
  Transmission Date: 20050211
  Serious: Yes (Hospitalization)
  Sender: FDA-Public Use
  Company Number: 163-20785-04050356

PATIENT
  Age: 57 Year
  Sex: Female

DRUGS (3)
  1. THALOMID [Suspect]
     Indication: MULTIPLE MYELOMA
     Dosage: 50 MG, DAILY, ORAL
     Route: 048
     Dates: start: 20020531
  2. PAMIDRONATE (PAMIDRONAET DISODIUM) [Suspect]
     Indication: MULTIPLE MYELOMA
  3. LOVENOX [Concomitant]

REACTIONS (1)
  - FEMUR FRACTURE [None]
